FAERS Safety Report 13737124 (Version 1)
Quarter: 2017Q3

REPORT INFORMATION
  Report Type: Spontaneous
  Country: US (occurrence: US)
  Receive Date: 20170710
  Receipt Date: 20170710
  Transmission Date: 20171127
  Serious: Yes (Life-Threatening, Other)
  Sender: FDA-Public Use
  Company Number: US-STANDARD HOMEOPATHIC COMPANY-2023139

PATIENT
  Sex: Male

DRUGS (2)
  1. BABY TEETHING (HYLAND HOMEOPATHIC) [Suspect]
     Active Substance: HOMEOPATHICS
     Route: 048
     Dates: start: 20160824, end: 20160827
  2. BABY TEETHING (HYLAND HOMEOPATHIC) [Suspect]
     Active Substance: HOMEOPATHICS
     Indication: TEETHING
     Route: 048
     Dates: start: 20160824, end: 20160827

REACTIONS (4)
  - Seizure [None]
  - Dyspnoea [None]
  - Loss of consciousness [None]
  - Skin discolouration [None]

NARRATIVE: CASE EVENT DATE: 20160827
